FAERS Safety Report 7328751-X (Version None)
Quarter: 2011Q1

REPORT INFORMATION
  Report Type: 
  Country: None (occurrence: None)
  Receive Date: 20110225
  Receipt Date: 20110225
  Transmission Date: 20110831
  Serious: Yes (Other)
  Sender: FDA-Public Use
  Company Number: None

PATIENT
  Sex: Male
  Weight: 85.2762 kg

DRUGS (9)
  1. CIPROFLOXACIN HYDROCHLORIDE [Suspect]
     Indication: PROSTATIC SPECIFIC ANTIGEN INCREASED
     Dosage: 500 MG ONE TABLET PER DAY PO
     Route: 048
     Dates: start: 20100930, end: 20101004
  2. CIPROFLOXACIN HYDROCHLORIDE [Suspect]
     Indication: INFECTION
     Dosage: 500 MG ONE TABLET PER DAY PO
     Route: 048
     Dates: start: 20100930, end: 20101004
  3. ALLOPURINOL [Concomitant]
  4. VITAMIN B-12 [Concomitant]
  5. ATENOLOL [Concomitant]
  6. SIMVASTATIN [Concomitant]
  7. OMEGA 3 -DHA/EPA- [Concomitant]
  8. VITAMIN D [Concomitant]
  9. WARFARIN [Concomitant]

REACTIONS (2)
  - JOINT CREPITATION [None]
  - ARTHROPATHY [None]
